FAERS Safety Report 4575713-1 (Version None)
Quarter: 2005Q1

REPORT INFORMATION
  Report Type: 
  Country: None (occurrence: None)
  Receive Date: 20050201
  Receipt Date: 20050201
  Transmission Date: 20050727
  Serious: Yes (Hospitalization)
  Sender: FDA-Public Use
  Company Number: None

PATIENT
  Age: 64 Year
  Sex: Male
  Weight: 77.5651 kg

DRUGS (4)
  1. OXALIPLATIN [Suspect]
     Indication: BILE DUCT CANCER
     Dosage: 130 MG/M2 IV
     Route: 042
     Dates: start: 20050124
  2. DOCETAXEL [Suspect]
     Indication: BILE DUCT CANCER
     Dosage: 40 MG/M2 IV
     Route: 042
     Dates: start: 20050124
  3. DECADRON [Concomitant]
  4. CELEBREX [Concomitant]

REACTIONS (3)
  - FATIGUE [None]
  - GASTROINTESTINAL HAEMORRHAGE [None]
  - INFLUENZA [None]
